FAERS Safety Report 9268406 (Version 1)
Quarter: 2013Q2

REPORT INFORMATION
  Report Type: Spontaneous
  Country: US (occurrence: US)
  Receive Date: 20130502
  Receipt Date: 20130502
  Transmission Date: 20140414
  Serious: No
  Sender: FDA-Public Use
  Company Number: US-ALEXION-A201202474

PATIENT
  Age: 40 Year
  Sex: Female

DRUGS (3)
  1. SOLIRIS 300MG [Suspect]
     Indication: PAROXYSMAL NOCTURNAL HAEMOGLOBINURIA
     Dosage: UNK
     Route: 042
     Dates: start: 2008
  2. SOLIRIS 300MG [Suspect]
     Dosage: 1200 MG, UNK
     Dates: start: 201110
  3. IRON [Concomitant]
     Dosage: UNK, QD

REACTIONS (2)
  - Blood lactate dehydrogenase increased [Unknown]
  - Haemoglobin decreased [Unknown]
